FAERS Safety Report 6326586-8 (Version None)
Quarter: 2009Q3

REPORT INFORMATION
  Report Type: 
  Country: None (occurrence: None)
  Receive Date: 20090821
  Receipt Date: 20090807
  Transmission Date: 20100115
  Serious: Yes (Other)
  Sender: FDA-Public Use
  Company Number: GB-000715

PATIENT
  Age: 16 Year
  Sex: Female
  Weight: 60 kg

DRUGS (2)
  1. DESMOSPRAY /00361901/ (DESMOSPRAY) 1 DF [Suspect]
     Indication: DIABETES INSIPIDUS
     Dosage: (1 DF NASAL), (ONE PUFF AT NIGHT NASAL)
     Route: 045
  2. ORAL CONTRACEPTIVE NOS [Concomitant]

REACTIONS (3)
  - CONDITION AGGRAVATED [None]
  - DIABETES INSIPIDUS [None]
  - DRUG EFFECT DECREASED [None]
